FAERS Safety Report 14981478 (Version 1)
Quarter: 2018Q2

REPORT INFORMATION
  Report Type: Spontaneous
  Country: AU (occurrence: AU)
  Receive Date: 20180606
  Receipt Date: 20180606
  Transmission Date: 20180711
  Serious: Yes (Other)
  Sender: FDA-Public Use
  Company Number: AU-009507513-1806AUS000851

PATIENT
  Sex: Male

DRUGS (1)
  1. ELOCON [Suspect]
     Active Substance: MOMETASONE FUROATE
     Dosage: 60 MG, UNK

REACTIONS (1)
  - Steroid withdrawal syndrome [Not Recovered/Not Resolved]
